FAERS Safety Report 12613956 (Version 1)
Quarter: 2016Q3

REPORT INFORMATION
  Report Type: Spontaneous
  Country: US (occurrence: None)
  Receive Date: 20160801
  Receipt Date: 20160801
  Transmission Date: 20161109
  Serious: Yes (Disabling)
  Sender: FDA-Public Use
  Company Number: None

PATIENT
  Age: 56 Year
  Sex: Female
  Weight: 68.04 kg

DRUGS (3)
  1. CIPROFLOXIN [Suspect]
     Active Substance: CIPROFLOXACIN
     Indication: INFECTION
  2. PROBIOTICS [Concomitant]
     Active Substance: PROBIOTICS NOS
  3. MAGNESIUM [Concomitant]
     Active Substance: MAGNESIUM

REACTIONS (9)
  - Weight decreased [None]
  - Depression [None]
  - Feeling abnormal [None]
  - Paraesthesia [None]
  - Fear [None]
  - Neuropathy peripheral [None]
  - Eating disorder [None]
  - Tinnitus [None]
  - Anxiety [None]

NARRATIVE: CASE EVENT DATE: 20140704
